FAERS Safety Report 7608136-9 (Version None)
Quarter: 2011Q3

REPORT INFORMATION
  Report Type: 
  Country: None (occurrence: None)
  Receive Date: 20110706
  Receipt Date: 20110628
  Transmission Date: 20111222
  Serious: Yes (Hospitalization)
  Sender: FDA-Public Use
  Company Number: SEL-11-02

PATIENT
  Age: 73 Year
  Sex: Female

DRUGS (2)
  1. ESCITALOPRAM [Concomitant]
  2. SELEGILINE [Suspect]
     Indication: PARKINSON'S DISEASE
     Dosage: 5MG/DAY

REACTIONS (3)
  - CEREBRAL ATROPHY [None]
  - SEROTONIN SYNDROME [None]
  - CEREBRAL ISCHAEMIA [None]
